FAERS Safety Report 9184023 (Version 1)
Quarter: 2013Q1

REPORT INFORMATION
  Report Type: Spontaneous
  Country: US (occurrence: US)
  Receive Date: 20130322
  Receipt Date: 20130322
  Transmission Date: 20140127
  Serious: No
  Sender: FDA-Public Use
  Company Number: US-BRISTOL-MYERS SQUIBB COMPANY-16702672

PATIENT
  Age: 75 Year
  Sex: Female
  Weight: 55.33 kg

DRUGS (1)
  1. ERBITUX [Suspect]
     Indication: SQUAMOUS CELL CARCINOMA OF SKIN
     Dosage: 1DF= 400-UNITS NOS

REACTIONS (6)
  - Memory impairment [Unknown]
  - Skin disorder [Unknown]
  - Onychalgia [Unknown]
  - Ingrowing nail [Unknown]
  - Pain in extremity [Unknown]
  - Hair texture abnormal [Not Recovered/Not Resolved]
